FAERS Safety Report 17198282 (Version 5)
Quarter: 2025Q3

REPORT INFORMATION
  Report Type: Spontaneous
  Country: GB (occurrence: GB)
  Receive Date: 20191225
  Receipt Date: 20250710
  Transmission Date: 20251021
  Serious: Yes (Hospitalization, Other)
  Sender: AUROBINDO
  Company Number: GB-ACCORD-165027

PATIENT
  Age: 25 Year
  Sex: Male

DRUGS (4)
  1. CITALOPRAM [Suspect]
     Active Substance: CITALOPRAM
     Indication: Depression
     Route: 065
  2. LORAZEPAM [Concomitant]
     Active Substance: LORAZEPAM
     Indication: Agitation
     Route: 048
  3. VITAMIN B [Concomitant]
     Active Substance: VITAMIN B
     Indication: Alcohol withdrawal syndrome
     Route: 065
  4. VITAMIN C [Concomitant]
     Active Substance: ASCORBIC ACID
     Indication: Alcohol withdrawal syndrome
     Route: 065

REACTIONS (7)
  - Palpitations [Unknown]
  - Serotonin syndrome [Unknown]
  - Alcohol withdrawal syndrome [Unknown]
  - Serum serotonin increased [Unknown]
  - Toxicity to various agents [Unknown]
  - Hallucination, auditory [Recovered/Resolved]
  - Hallucination [Recovered/Resolved]
